FAERS Safety Report 14441815 (Version 2)
Quarter: 2018Q1

REPORT INFORMATION
  Report Type: Spontaneous
  Country: US (occurrence: US)
  Receive Date: 20180125
  Receipt Date: 20180214
  Transmission Date: 20180509
  Serious: No
  Sender: FDA-Public Use
  Company Number: US-GLAXOSMITHKLINE-US2018GSK013298

PATIENT
  Sex: Female
  Weight: 76.19 kg

DRUGS (1)
  1. NUCALA [Suspect]
     Active Substance: MEPOLIZUMAB
     Indication: ASTHMA
     Dosage: 100 MG, CYC (EVERY 4 WEEKS)
     Route: 058
     Dates: start: 20170926

REACTIONS (4)
  - Back pain [Unknown]
  - Drug effect decreased [Unknown]
  - Symptom recurrence [Unknown]
  - Fatigue [Unknown]
